FAERS Safety Report 9521917 (Version 1)
Quarter: 2013Q1

REPORT INFORMATION
  Report Type: Spontaneous
  Country: US (occurrence: None)
  Receive Date: 20130305
  Receipt Date: 20130305
  Transmission Date: 20140127
  Serious: Yes (Other)
  Sender: FDA-Public Use
  Company Number: 163-21880-12013260

PATIENT
  Age: 91 Year
  Sex: Female

DRUGS (1)
  1. REVLIMID [Suspect]
     Indication: MYELODYSPLASTIC SYNDROME
     Dosage: BEDTIME X 21 DAYS ON, 7 DAYS OFF
     Route: 048
     Dates: start: 201112

REACTIONS (2)
  - Thrombocytopenia [None]
  - Rash [None]
